FAERS Safety Report 9209132 (Version 1)
Quarter: 2013Q2

REPORT INFORMATION
  Report Type: Spontaneous
  Country: MX (occurrence: MX)
  Receive Date: 20130404
  Receipt Date: 20130404
  Transmission Date: 20140414
  Serious: Yes (Death)
  Sender: FDA-Public Use
  Company Number: PHHY2012MX109118

PATIENT
  Age: 86 Year
  Sex: Female

DRUGS (2)
  1. EXFORGE [Suspect]
     Indication: HYPERTENSION
     Dosage: 1 DF(160 MG VALSARTAN, 5 MG AMLODIPNE), DAILY
     Route: 048
     Dates: start: 2007
  2. ANTIDEPRESSANTS [Concomitant]

REACTIONS (3)
  - Infarction [Fatal]
  - Gastric infection [Not Recovered/Not Resolved]
  - Abdominal pain upper [Not Recovered/Not Resolved]
